FAERS Safety Report 15534213 (Version 1)
Quarter: 2018Q4

REPORT INFORMATION
  Report Type: Spontaneous
  Country: US (occurrence: US)
  Receive Date: 20181019
  Receipt Date: 20181019
  Transmission Date: 20190205
  Serious: Yes (Hospitalization)
  Sender: FDA-Public Use
  Company Number: None

PATIENT
  Age: 27 Year
  Sex: Female

DRUGS (2)
  1. ALKA-SELTZER PLUS SEVERE COLD AND FLU FORMULA [Suspect]
     Active Substance: ACETAMINOPHEN\CHLORPHENIRAMINE\DEXTROMETHORPHAN\PHENYLEPHRINE
     Indication: SECRETION DISCHARGE
     Dosage: ?          QUANTITY:1 CAPSULE(S);?
     Dates: start: 20181017, end: 20181017
  2. ALKA-SELTZER PLUS SEVERE COLD AND FLU FORMULA [Suspect]
     Active Substance: ACETAMINOPHEN\CHLORPHENIRAMINE\DEXTROMETHORPHAN\PHENYLEPHRINE
     Indication: COUGH
     Dosage: ?          QUANTITY:1 CAPSULE(S);?
     Dates: start: 20181017, end: 20181017

REACTIONS (2)
  - Heart rate decreased [None]
  - Hypoaesthesia [None]

NARRATIVE: CASE EVENT DATE: 20181017
